FAERS Safety Report 17825695 (Version 3)
Quarter: 2020Q3

REPORT INFORMATION
  Report Type: Report from Study
  Country: US (occurrence: US)
  Receive Date: 20200526
  Receipt Date: 20200730
  Transmission Date: 20201102
  Serious: Yes (Hospitalization)
  Sender: FDA-Public Use
  Company Number: US-EISAI MEDICAL RESEARCH-EC-2020-074420

PATIENT
  Age: 59 Year
  Sex: Male
  Weight: 97 kg

DRUGS (10)
  1. LENVIMA [Suspect]
     Active Substance: LENVATINIB
     Route: 048
     Dates: start: 20200724
  2. XIFAXAN [Concomitant]
     Active Substance: RIFAXIMIN
  3. LENVIMA [Suspect]
     Active Substance: LENVATINIB
     Indication: HEPATOCELLULAR CARCINOMA
     Route: 048
     Dates: start: 20200501, end: 20200509
  4. PANTOPRAZOLE SODIUM. [Concomitant]
     Active Substance: PANTOPRAZOLE SODIUM
  5. LENVIMA [Suspect]
     Active Substance: LENVATINIB
     Route: 048
     Dates: start: 20200511, end: 202007
  6. LACTULOSE. [Suspect]
     Active Substance: LACTULOSE
     Indication: PRODUCT USED FOR UNKNOWN INDICATION
     Dosage: 10 G/15 ML, SOLUTION
  7. SPIRONOLACTONE. [Concomitant]
     Active Substance: SPIRONOLACTONE
  8. TYLENOL [Concomitant]
     Active Substance: ACETAMINOPHEN
  9. CETIRI?D [Concomitant]
     Dosage: 5 MG?120 MG TABLET, SR 12 H
  10. NADOLOL. [Concomitant]
     Active Substance: NADOLOL

REACTIONS (13)
  - Lethargy [Unknown]
  - Blood pressure increased [Unknown]
  - Dehydration [Unknown]
  - Diarrhoea [Unknown]
  - Stomatitis [Unknown]
  - Ammonia increased [Unknown]
  - Fatigue [Unknown]
  - Tremor [Unknown]
  - Pain [Unknown]
  - Amnesia [Unknown]
  - Arthralgia [Unknown]
  - Feeding disorder [Unknown]
  - Muscle spasms [Unknown]

NARRATIVE: CASE EVENT DATE: 2020
